FAERS Safety Report 6483773-6 (Version None)
Quarter: 2009Q4

REPORT INFORMATION
  Report Type: 
  Country: None (occurrence: None)
  Receive Date: 20091209
  Receipt Date: 20091130
  Transmission Date: 20100525
  Serious: Yes (Hospitalization)
  Sender: FDA-Public Use
  Company Number: NZ-ASTRAZENECA-2009SE29254

PATIENT
  Age: 57 Year
  Sex: Male

DRUGS (5)
  1. OMEPRAZOLE [Suspect]
     Route: 048
     Dates: start: 20050707, end: 20050708
  2. MOXIFLOXACIN HCL [Concomitant]
     Route: 048
     Dates: start: 20050707
  3. IPRATROPIUM BROMIDE [Concomitant]
     Route: 055
     Dates: start: 20050707
  4. METHOTREXATE [Concomitant]
     Route: 048
  5. PREDNISONE [Concomitant]
     Route: 048
     Dates: start: 20050707

REACTIONS (3)
  - AMNESIA [None]
  - HALLUCINATION [None]
  - VISUAL IMPAIRMENT [None]
